FAERS Safety Report 4348920-0 (Version None)
Quarter: 2004Q1

REPORT INFORMATION
  Report Type: 
  Country: None (occurrence: None)
  Receive Date: 20040325
  Receipt Date: 20040119
  Transmission Date: 20041129
  Serious: No
  Sender: FDA-Public Use
  Company Number: USA031152081

PATIENT
  Age: 71 Year
  Sex: Male

DRUGS (29)
  1. FORTEO [Suspect]
     Indication: OSTEOPOROSIS
     Dates: start: 20030117, end: 20030801
  2. DARVOCET-N 100 [Concomitant]
  3. MULTIVITAMIN [Concomitant]
  4. THEOPHYLLINE [Concomitant]
  5. VALIUM [Concomitant]
  6. BRETHINE [Concomitant]
  7. PLAVIX [Concomitant]
  8. SINGULAIR [Concomitant]
  9. VITAMIN C [Concomitant]
  10. ALBUTEROL [Concomitant]
  11. SOMA [Concomitant]
  12. ADVAIR DISKUS 100/50 [Concomitant]
  13. SELENIUM TRACE METAL ADDITIVE [Concomitant]
  14. GLUCOSAMINE CHONDROITIN [Concomitant]
  15. ALTACE [Concomitant]
  16. LESCOL [Concomitant]
  17. ATENOLOL [Concomitant]
  18. SAW PALMETTO [Concomitant]
  19. FLUNISOLIDE [Concomitant]
  20. ATROVENT [Concomitant]
  21. MAGNESIUM [Concomitant]
  22. MIACALCIN [Concomitant]
  23. SALINE (SODIUM CHLORIDE) [Concomitant]
  24. FOSAMAX [Concomitant]
  25. BEANO (ALPHA-D-GALACTOSIDASE) [Concomitant]
  26. DOCUSATE [Concomitant]
  27. ZYRTEC [Concomitant]
  28. IMDUR [Concomitant]
  29. TIAZAC [Concomitant]

REACTIONS (1)
  - GYNAECOMASTIA [None]
